FAERS Safety Report 6265085-9 (Version None)
Quarter: 2009Q3

REPORT INFORMATION
  Report Type: 
  Country: None (occurrence: None)
  Receive Date: 20090713
  Receipt Date: 20090630
  Transmission Date: 20100115
  Serious: Yes (Hospitalization)
  Sender: FDA-Public Use
  Company Number: DE-JNJFOC-20090700288

PATIENT
  Age: 73 Year
  Sex: Female
  Weight: 63 kg

DRUGS (4)
  1. REMICADE [Suspect]
     Indication: INFLAMMATION
     Route: 042
  2. IMUREK [Concomitant]
     Route: 048
  3. BUDENOFALK [Concomitant]
     Route: 048
  4. PENTASA [Concomitant]
     Route: 048

REACTIONS (4)
  - DIARRHOEA [None]
  - ERYSIPELAS [None]
  - NAUSEA [None]
  - TACHYARRHYTHMIA [None]
